FAERS Safety Report 9624745 (Version 2)
Quarter: 2013Q4

REPORT INFORMATION
  Report Type: Spontaneous
  Country: GB (occurrence: GB)
  Receive Date: 20131015
  Receipt Date: 20131015
  Transmission Date: 20140711
  Serious: Yes (Other)
  Sender: FDA-Public Use
  Company Number: GB-PFIZER INC-2011064047

PATIENT
  Sex: Female

DRUGS (2)
  1. PHENYTOIN [Suspect]
     Dosage: UNK
  2. CAPECITABINE [Interacting]

REACTIONS (3)
  - Drug interaction [Recovered/Resolved]
  - Drug level increased [Recovered/Resolved]
  - Lethargy [Recovered/Resolved]
